FAERS Safety Report 8858856 (Version 3)
Quarter: 2013Q2

REPORT INFORMATION
  Report Type: Spontaneous
  Country: US (occurrence: US)
  Receive Date: 20121024
  Receipt Date: 20130403
  Transmission Date: 20140414
  Serious: Yes (Hospitalization)
  Sender: FDA-Public Use
  Company Number: US-BAYER-2012-108891

PATIENT
  Age: 39 Year
  Sex: Female

DRUGS (12)
  1. BEYAZ [Suspect]
     Dosage: UNK
  2. YAZ [Suspect]
     Dosage: UNK
  3. YASMIN [Suspect]
     Dosage: UNK
  4. LEVAQUIN [Concomitant]
     Indication: WOUND INFECTION
     Dosage: UNK
  5. METFORMIN [Concomitant]
  6. HYDROCHLOROTHIAZIDE [Concomitant]
  7. LASIX [Concomitant]
  8. ALBUTEROL [Concomitant]
  9. LORTAB [Concomitant]
  10. CLINDAMYCIN [Concomitant]
  11. BACTROBAN [Concomitant]
  12. PRENATAL VITAMINS [Concomitant]

REACTIONS (6)
  - Pulmonary embolism [None]
  - Pain [None]
  - Injury [None]
  - Pulmonary embolism [None]
  - Deep vein thrombosis [None]
  - Pain [None]
